FAERS Safety Report 22753295 (Version 2)
Quarter: 2024Q3

REPORT INFORMATION
  Report Type: Spontaneous
  Country: US (occurrence: US)
  Receive Date: 20230726
  Receipt Date: 20240829
  Transmission Date: 20241016
  Serious: No
  Sender: PFIZER
  Company Number: US-PFIZER INC-PV202300126362

PATIENT
  Age: 66 Year
  Sex: Female

DRUGS (1)
  1. CIBINQO [Suspect]
     Active Substance: ABROCITINIB
     Dosage: 100 MG, DAILY. TAKE 1 TABLET BY MOUTH
     Route: 048

REACTIONS (3)
  - Mental disorder [Unknown]
  - Pruritus [Unknown]
  - Vitamin B12 decreased [Unknown]
